FAERS Safety Report 25013501 (Version 1)
Quarter: 2025Q1

REPORT INFORMATION
  Report Type: Spontaneous
  Country: NL (occurrence: NL)
  Receive Date: 20250226
  Receipt Date: 20250226
  Transmission Date: 20250408
  Serious: Yes (Hospitalization, Other)
  Sender: MERCK SHARP & DOHME LLC
  Company Number: None

PATIENT
  Age: 56 Year
  Sex: Female
  Weight: 82 kg

DRUGS (12)
  1. PEMBROLIZUMAB [Suspect]
     Active Substance: PEMBROLIZUMAB
     Indication: Non-small cell lung cancer
     Dosage: 300 MG, 125 ML/HOUR, EVERY 6 WEEKS
     Dates: start: 20231222
  2. LOSARTAN/HYDROCHLOROTHIAZIDE TABLET 100/12.5MG / Brand name not spe... [Concomitant]
     Route: 048
  3. ACETYLCYSTEINE Effervescent TABLET 600MG / Brand name not specified [Concomitant]
     Route: 048
  4. NADROPARINE INJVLST 9500IE/ML / Brand name not specified [Concomitant]
  5. OXAZEPAM [Concomitant]
     Active Substance: OXAZEPAM
     Route: 048
  6. FLUTICASON INHALATION POWDER 500UG/DO / Brand name not specified [Concomitant]
  7. SALBUTAMOL INHALATION POWDER 200UG/DO / Brand name not specified [Concomitant]
  8. METOCLOPRAMIDE SUPPOSITORY 10MG / Brand name not specified [Concomitant]
     Route: 054
  9. AMLODIPINE TABLET   5MG / Brand name not specified [Concomitant]
     Route: 048
  10. METOCLOPRAMIDE [Concomitant]
     Active Substance: METOCLOPRAMIDE
     Route: 048
  11. DEXAMETHASONE [Suspect]
     Active Substance: DEXAMETHASONE
     Indication: Metastases to central nervous system
     Dosage: 1DD1
     Route: 048
     Dates: start: 20231107
  12. PARACETAMOL TABLET 500MG / Brand name not specified [Concomitant]
     Route: 048

REACTIONS (1)
  - Pneumocystis jirovecii pneumonia [Recovered/Resolved]
